FAERS Safety Report 23828718 (Version 2)
Quarter: 2024Q3

REPORT INFORMATION
  Report Type: Spontaneous
  Country: US (occurrence: US)
  Receive Date: 20240508
  Receipt Date: 20240814
  Transmission Date: 20241017
  Serious: No
  Sender: DR REDDYS
  Company Number: US-E2BLSMVVAL-SPO/USA/24/0006461

PATIENT
  Age: 24 Year
  Sex: Female

DRUGS (1)
  1. DIETARY SUPPLEMENT [Suspect]
     Active Substance: DIETARY SUPPLEMENT
     Indication: Polycystic ovaries
     Route: 065
     Dates: start: 20240421, end: 20240424

REACTIONS (2)
  - Poor quality product administered [Unknown]
  - Product colour issue [Unknown]
